FAERS Safety Report 4280254-5 (Version None)
Quarter: 2004Q1

REPORT INFORMATION
  Report Type: 
  Country: None (occurrence: None)
  Receive Date: 20040126
  Receipt Date: 20040116
  Transmission Date: 20041129
  Serious: Yes (Death, Hospitalization, Other)
  Sender: FDA-Public Use
  Company Number: US-SHR-03-016472

PATIENT
  Age: 68 Year
  Sex: Female
  Weight: 63.5 kg

DRUGS (6)
  1. BETASERON [Suspect]
     Indication: MULTIPLE SCLEROSIS
     Dosage: 8 MIU, EVERY 2D, SUBCUTANEOUS
     Route: 058
     Dates: start: 19990908, end: 20031020
  2. DIAZEPAM [Concomitant]
  3. ZOLOFT [Concomitant]
  4. POTASSIUM (POTASSIUM) [Concomitant]
  5. ORPHENADRINE CITRATE [Concomitant]
  6. ASPIRIN [Concomitant]

REACTIONS (7)
  - CEREBROVASCULAR STENOSIS [None]
  - FALL [None]
  - NUCLEAR MAGNETIC RESONANCE IMAGING BRAIN ABNORMAL [None]
  - PNEUMONIA ASPIRATION [None]
  - PROGRESSIVE MULTIPLE SCLEROSIS [None]
  - SEPSIS [None]
  - URINARY TRACT INFECTION [None]
